FAERS Safety Report 9835690 (Version 2)
Quarter: 2014Q1

REPORT INFORMATION
  Report Type: Report from Study
  Country: DK (occurrence: DK)
  Receive Date: 20140122
  Receipt Date: 20140122
  Transmission Date: 20141002
  Serious: Yes (Hospitalization)
  Sender: FDA-Public Use
  Company Number: DK-009507513-0701USA03045

PATIENT
  Age: 58 Year
  Sex: Male
  Weight: 83.5 kg

DRUGS (8)
  1. SIMVASTATIN [Suspect]
     Indication: ACUTE CORONARY SYNDROME
     Dosage: UNK
     Route: 048
     Dates: start: 20061130
  2. SIMVASTATIN [Suspect]
     Dosage: 40 MG, QD
     Route: 048
  3. CENTYL [Concomitant]
     Dosage: 2.5 MG
     Route: 048
     Dates: start: 19960118
  4. PLAVIX [Concomitant]
     Dosage: 75 MG
     Route: 048
     Dates: start: 20061127
  5. MAGNYL [Concomitant]
     Dosage: 75 MG
     Route: 048
     Dates: start: 19951114
  6. KALEORID [Concomitant]
     Dosage: 1500 MG
     Route: 048
     Dates: start: 20061127
  7. SELO-ZOK [Concomitant]
     Dosage: 100 MG
     Route: 048
     Dates: start: 19951114
  8. CORODIL [Concomitant]
     Dosage: 40 MG
     Route: 048
     Dates: start: 20000202

REACTIONS (1)
  - Cholelithiasis [Recovered/Resolved]
